FAERS Safety Report 9165544 (Version 1)
Quarter: 2013Q1

REPORT INFORMATION
  Report Type: Spontaneous
  Country: FR (occurrence: None)
  Receive Date: 20130212
  Receipt Date: 20130212
  Transmission Date: 20140127
  Serious: Yes (Life-Threatening, Hospitalization)
  Sender: FDA-Public Use
  Company Number: 2013034673

PATIENT
  Age: 59 Year
  Sex: Male

DRUGS (1)
  1. PRIVIGEN (IMMUNE GLOBULIN INTRAVENOUS (HUMAN) 10% LIQUID) [Suspect]
     Indication: IMMUNODEFICIENCY
     Dosage: 20 G, SINGLE DOSE, INTRAVENOUS (NOT OTHERWISE SPECIFIED)?THERAPY DURATION: 1 HOUR 10 MIN.
     Dates: start: 20130107, end: 20130107

REACTIONS (4)
  - Chest pain [None]
  - Tachycardia [None]
  - Chills [None]
  - Pyrexia [None]
